FAERS Safety Report 7570104-3 (Version None)
Quarter: 2011Q2

REPORT INFORMATION
  Report Type: 
  Country: None (occurrence: None)
  Receive Date: 20110622
  Receipt Date: 20110622
  Transmission Date: 20111010
  Serious: No
  Sender: FDA-Public Use
  Company Number: None

PATIENT
  Sex: Male
  Weight: 90.7194 kg

DRUGS (2)
  1. PRAVASTATIN [Suspect]
  2. SIMVASTATIN [Suspect]

REACTIONS (3)
  - CRYING [None]
  - FEELING ABNORMAL [None]
  - DRY THROAT [None]
